FAERS Safety Report 23292509 (Version 2)
Quarter: 2023Q4

REPORT INFORMATION
  Report Type: Spontaneous
  Country: LU (occurrence: LU)
  Receive Date: 20231213
  Receipt Date: 20231221
  Transmission Date: 20240110
  Serious: Yes (Disabling, Other)
  Sender: FDA-Public Use
  Company Number: LU-JNJFOC-20231220912

PATIENT
  Age: 70 Year
  Sex: Female

DRUGS (2)
  1. IBUPROFEN [Suspect]
     Active Substance: IBUPROFEN
     Indication: Arthralgia
     Dosage: 400 MG, BID
     Route: 048
     Dates: start: 20231014, end: 20231020
  2. IBUPROFEN [Suspect]
     Active Substance: IBUPROFEN
     Dosage: 600 MG, BID
     Route: 048
     Dates: start: 20231021, end: 20231026

REACTIONS (1)
  - Diverticulitis [Recovered/Resolved]

NARRATIVE: CASE EVENT DATE: 20231026
